FAERS Safety Report 5397362-8 (Version None)
Quarter: 2007Q3

REPORT INFORMATION
  Report Type: 
  Country: None (occurrence: None)
  Receive Date: 20070718
  Receipt Date: 20061229
  Transmission Date: 20080115
  Serious: Yes (Death, Other)
  Sender: FDA-Public Use
  Company Number: 2006117730

PATIENT
  Age: 81 Year
  Sex: Male

DRUGS (2)
  1. CELEBREX [Suspect]
     Indication: PAIN MANAGEMENT
     Dosage: (200 MG), ORAL
     Route: 048
     Dates: start: 20030415
  2. VIOXX [Suspect]
     Indication: PAIN MANAGEMENT
     Dosage: ORAL
     Route: 048
     Dates: start: 20040723

REACTIONS (1)
  - MYOCARDIAL INFARCTION [None]
